FAERS Safety Report 17148776 (Version 2)
Quarter: 2022Q3

REPORT INFORMATION
  Report Type: Report from Study
  Country: US (occurrence: None)
  Receive Date: 20191213
  Receipt Date: 20220923
  Transmission Date: 20221027
  Serious: Yes (Hospitalization)
  Sender: FDA-Public Use
  Company Number: US-ROCHE-2478363

PATIENT
  Age: 55 Year
  Sex: Male

DRUGS (2)
  1. ATEZOLIZUMAB [Suspect]
     Active Substance: ATEZOLIZUMAB
     Indication: Neoplasm
     Dosage: OVER 60 MINUTES ON DAYS 1 AND 15
     Route: 041
  2. COBIMETINIB [Suspect]
     Active Substance: COBIMETINIB
     Indication: Neoplasm
     Dosage: ON DAYS 1-21
     Route: 048

REACTIONS (1)
  - Acute kidney injury [Recovered/Resolved]

NARRATIVE: CASE EVENT DATE: 20180417
